FAERS Safety Report 8583056-4 (Version None)
Quarter: 2012Q3

REPORT INFORMATION
  Report Type: 
  Country: None (occurrence: None)
  Receive Date: 20120727
  Receipt Date: 20120716
  Transmission Date: 20120928
  Serious: Yes (Death)
  Sender: FDA-Public Use
  Company Number: 011726

PATIENT
  Age: 48 Year
  Sex: Female

DRUGS (3)
  1. FLUDARABINE PHOSPHATE [Concomitant]
  2. BUSULFEX [Suspect]
     Dosage: 3.2 MG/KG, DAILY DOSE, INTRAVENOUS
     Route: 042
  3. CAMPATH USA (ALEMTUZUMAB) [Concomitant]

REACTIONS (1)
  - DEATH [None]
